FAERS Safety Report 14430760 (Version 1)
Quarter: 2018Q1

REPORT INFORMATION
  Report Type: Spontaneous
  Country: US (occurrence: US)
  Receive Date: 20180124
  Receipt Date: 20180124
  Transmission Date: 20180509
  Serious: No
  Sender: FDA-Public Use
  Company Number: PHHY2018US011524

PATIENT
  Age: 84 Year
  Sex: Male

DRUGS (2)
  1. ICAPS AREDS [Suspect]
     Active Substance: MINERALS\VITAMINS
     Dosage: 1 DF, QD
     Route: 065
  2. ICAPS AREDS [Suspect]
     Active Substance: MINERALS\VITAMINS
     Indication: PRODUCT USED FOR UNKNOWN INDICATION
     Dosage: 2 DF, QD
     Route: 065

REACTIONS (1)
  - Swelling [Recovering/Resolving]

NARRATIVE: CASE EVENT DATE: 201801
